FAERS Safety Report 16442304 (Version 1)
Quarter: 2019Q2

REPORT INFORMATION
  Report Type: Report from Study
  Country: None (occurrence: US)
  Receive Date: 20190617
  Receipt Date: 20190617
  Transmission Date: 20190711
  Serious: No
  Sender: FDA-Public Use
  Company Number: US-US WORLDMEDS, LLC-USW201903-000578

PATIENT
  Age: 76 Year
  Sex: Male
  Weight: 83.91 kg

DRUGS (4)
  1. ASPIRIN. [Concomitant]
     Active Substance: ASPIRIN
  2. LEXAPRO [Concomitant]
     Active Substance: ESCITALOPRAM OXALATE
  3. APOKYN [Suspect]
     Active Substance: APOMORPHINE HYDROCHLORIDE
     Indication: PARKINSON^S DISEASE
     Dosage: 10MG/1ML
     Route: 058
     Dates: start: 20180814
  4. SINEMET [Concomitant]
     Active Substance: CARBIDOPA\LEVODOPA

REACTIONS (5)
  - Myalgia [Recovering/Resolving]
  - Hypotension [Recovering/Resolving]
  - Fall [Recovering/Resolving]
  - Haemorrhage [Recovering/Resolving]
  - Heart rate decreased [Recovering/Resolving]

NARRATIVE: CASE EVENT DATE: 20190321
